FAERS Safety Report 6289806-4 (Version None)
Quarter: 2009Q3

REPORT INFORMATION
  Report Type: 
  Country: None (occurrence: None)
  Receive Date: 20090730
  Receipt Date: 20080801
  Transmission Date: 20100115
  Serious: No
  Sender: FDA-Public Use
  Company Number: US-BRISTOL-MYERS SQUIBB COMPANY-14285548

PATIENT
  Age: 63 Year
  Sex: Male
  Weight: 85 kg

DRUGS (7)
  1. COUMADIN [Suspect]
     Indication: HEART RATE IRREGULAR
     Dosage: INITIATED ON JUN04,DAILY.
  2. AMLODIPINE [Concomitant]
  3. METOPROLOL TARTRATE [Concomitant]
  4. PROSCAR [Concomitant]
  5. LOVAZA [Concomitant]
  6. LISINOPRIL AND HYDROCHLOROTHIAZIDE [Concomitant]
  7. TYLENOL (CAPLET) [Concomitant]

REACTIONS (2)
  - EPISTAXIS [None]
  - HEADACHE [None]
